FAERS Safety Report 14054944 (Version 1)
Quarter: 2017Q4

REPORT INFORMATION
  Report Type: Report from Study
  Country: None (occurrence: FR)
  Receive Date: 20171006
  Receipt Date: 20171006
  Transmission Date: 20180321
  Serious: Yes (Hospitalization)
  Sender: FDA-Public Use
  Company Number: FR-ABBVIE-17K-056-2121964-00

PATIENT
  Age: 85 Year
  Sex: Female

DRUGS (1)
  1. DUODOPA [Suspect]
     Active Substance: CARBIDOPA\LEVODOPA
     Indication: PARKINSON^S DISEASE
     Dosage: MD: 15 ML?CONTINUOUS FLOW RATE (DURING THE DAY): 4.5 ML/H?ED: 3 ML?DAY RYTHM: 7AM - 11 PM
     Route: 050
     Dates: start: 2014

REACTIONS (2)
  - Malaise [Unknown]
  - Epilepsy [Unknown]

NARRATIVE: CASE EVENT DATE: 20171004
